FAERS Safety Report 19266186 (Version 1)
Quarter: 2021Q2

REPORT INFORMATION
  Report Type: Other
  Country: US (occurrence: US)
  Receive Date: 20210518
  Receipt Date: 20210518
  Transmission Date: 20210717
  Serious: No
  Sender: FDA-Public Use
  Company Number: US-NEUROCRINE BIOSCIENCES INC.-2021NBI02238

PATIENT

DRUGS (12)
  1. DIOXIDINE [Concomitant]
     Dosage: UNK
  2. HYDROXYCUT [Concomitant]
     Active Substance: DIETARY SUPPLEMENT
     Dosage: UNK
  3. BENZAMYCIN [Concomitant]
     Active Substance: BENZOYL PEROXIDE\ERYTHROMYCIN
     Dosage: UNK
  4. MAGNESIUM CITRATE. [Concomitant]
     Active Substance: MAGNESIUM CITRATE
     Dosage: UNK
  5. INGREZZA [Suspect]
     Active Substance: VALBENAZINE
     Indication: SCHIZOPHRENIA
     Dosage: 80 MILLIGRAM
     Route: 048
  6. LAMOTRIGINE. [Concomitant]
     Active Substance: LAMOTRIGINE
     Dosage: UNK
  7. INVEGA SUSTENNA [Concomitant]
     Active Substance: PALIPERIDONE PALMITATE
     Dosage: UNK
  8. DIAZEPAM. [Concomitant]
     Active Substance: DIAZEPAM
     Dosage: UNK
  9. PROTOZOL [LANSOPRAZOLE] [Concomitant]
     Dosage: UNK
  10. STOOL SOFTENER (DOCUSATE) [Concomitant]
     Active Substance: DOCUSATE
     Dosage: UNK
  11. HYDROXYZINE [Concomitant]
     Active Substance: HYDROXYZINE HYDROCHLORIDE
     Dosage: UNK
  12. ZOLOM [Concomitant]
     Dosage: UNK

REACTIONS (8)
  - Panic attack [Unknown]
  - Abdominal distension [Unknown]
  - Constipation [Unknown]
  - Off label use [Unknown]
  - Weight increased [Unknown]
  - Amnesia [Unknown]
  - Chest pain [Unknown]
  - Road traffic accident [Recovered/Resolved]

NARRATIVE: CASE EVENT DATE: 20210422
